FAERS Safety Report 7177153-8 (Version None)
Quarter: 2010Q4

REPORT INFORMATION
  Report Type: 
  Country: None (occurrence: None)
  Receive Date: 20101220
  Receipt Date: 20101217
  Transmission Date: 20110411
  Serious: Yes (Hospitalization)
  Sender: FDA-Public Use
  Company Number: US-PFIZER INC-2010174014

PATIENT
  Sex: Female
  Weight: 24 kg

DRUGS (5)
  1. SOMATROPIN RDNA [Suspect]
     Dosage: 0.4 MG, 1X/DAY
     Route: 058
     Dates: start: 20080601, end: 20080912
  2. SOMATROPIN RDNA [Suspect]
     Dosage: 0.6 MG, 1X/DAY
     Route: 058
     Dates: start: 20080913, end: 20081209
  3. SOMATROPIN RDNA [Suspect]
     Dosage: 0.7 MG, 1X/DAY
     Route: 058
     Dates: start: 20081210, end: 20090908
  4. SOMATROPIN RDNA [Suspect]
     Dosage: 0.9 MG, 1X/DAY
     Route: 058
     Dates: start: 20090909, end: 20100421
  5. LORATADINE [Concomitant]
     Dosage: UNK
     Route: 048
     Dates: start: 20100223, end: 20100608

REACTIONS (1)
  - SLEEP APNOEA SYNDROME [None]
